FAERS Safety Report 6662563-5 (Version None)
Quarter: 2010Q1

REPORT INFORMATION
  Report Type: 
  Country: None (occurrence: None)
  Receive Date: 20100329
  Receipt Date: 20100324
  Transmission Date: 20100710
  Serious: Yes (Life-Threatening, Hospitalization)
  Sender: FDA-Public Use
  Company Number: 2010SP017820

PATIENT
  Age: 64 Year
  Sex: Female
  Weight: 48 kg

DRUGS (8)
  1. DEXAMETHASONE [Suspect]
     Indication: NON-SMALL CELL LUNG CANCER METASTATIC
     Dosage: 8 MG; PRN; IV
     Route: 042
  2. CARBOPLATIN [Suspect]
     Indication: NON-SMALL CELL LUNG CANCER METASTATIC
     Dosage: 430 MG
  3. GEMCITABINE [Suspect]
     Indication: NON-SMALL CELL LUNG CANCER METASTATIC
     Dosage: 1250 MG/M2; IV
     Route: 042
     Dates: start: 20100219, end: 20100219
  4. METOCLOPRAMIDE (METOCLOPRAMIDE) [Suspect]
     Indication: NON-SMALL CELL LUNG CANCER METASTATIC
     Dosage: IV
     Route: 042
  5. ONDANSETRON [Suspect]
     Indication: NON-SMALL CELL LUNG CANCER METASTATIC
     Dosage: 8 MG; IV
     Route: 042
     Dates: start: 20100219
  6. IBRUPROFEN [Concomitant]
  7. PARACETAMOL [Concomitant]
  8. TRAMADOL HYDROCHLORIDE [Concomitant]

REACTIONS (2)
  - HEPATITIS [None]
  - MALAISE [None]
